FAERS Safety Report 22308695 (Version 1)
Quarter: 2023Q2

REPORT INFORMATION
  Report Type: Spontaneous
  Country: US (occurrence: None)
  Receive Date: 20230511
  Receipt Date: 20230511
  Transmission Date: 20230721
  Serious: No
  Sender: FDA-Public Use
  Company Number: US-ROCHE-3274953

PATIENT
  Sex: Female

DRUGS (1)
  1. OCREVUS [Suspect]
     Active Substance: OCRELIZUMAB
     Indication: Multiple sclerosis relapse
     Dosage: YES
     Route: 065
     Dates: start: 202202

REACTIONS (3)
  - Muscular weakness [Unknown]
  - Gait disturbance [Unknown]
  - Drug ineffective [Unknown]
